FAERS Safety Report 7677367-4 (Version None)
Quarter: 2011Q3

REPORT INFORMATION
  Report Type: 
  Country: None (occurrence: None)
  Receive Date: 20110811
  Receipt Date: 20110729
  Transmission Date: 20111222
  Serious: Yes (Other)
  Sender: FDA-Public Use
  Company Number: US-ELI_LILLY_AND_COMPANY-US201108001438

PATIENT
  Sex: Female

DRUGS (5)
  1. CYMBALTA [Suspect]
     Dosage: 15 MG, QD
  2. CYMBALTA [Suspect]
     Dosage: UNK, QD
  3. CYMBALTA [Suspect]
     Indication: POSTPARTUM DEPRESSION
     Dosage: 60 MG, QD
     Dates: start: 20110101
  4. CYMBALTA [Suspect]
     Dosage: 30 MG, QD
  5. LEVOTHYROXINE SODIUM [Concomitant]
     Dosage: UNK
     Dates: start: 20110720

REACTIONS (19)
  - VOMITING [None]
  - DRUG WITHDRAWAL SYNDROME [None]
  - WRONG TECHNIQUE IN DRUG USAGE PROCESS [None]
  - ABORTION THREATENED [None]
  - IRRITABILITY [None]
  - HYPERHIDROSIS [None]
  - OFF LABEL USE [None]
  - FEELING ABNORMAL [None]
  - MALAISE [None]
  - FATIGUE [None]
  - DIZZINESS [None]
  - ANXIETY [None]
  - PARAESTHESIA [None]
  - DIARRHOEA [None]
  - MICTURITION DISORDER [None]
  - MATERNAL EXPOSURE DURING PREGNANCY [None]
  - NAUSEA [None]
  - HEADACHE [None]
  - INSOMNIA [None]
